FAERS Safety Report 11359419 (Version 1)
Quarter: 2015Q3

REPORT INFORMATION
  Report Type: Spontaneous
  Country: US (occurrence: None)
  Receive Date: 20150807
  Receipt Date: 20150807
  Transmission Date: 20151125
  Serious: Yes (Hospitalization, Disabling)
  Sender: FDA-Public Use
  Company Number: None

PATIENT
  Age: 64 Year
  Sex: Male
  Weight: 86.18 kg

DRUGS (14)
  1. LISINOPRIL. [Concomitant]
     Active Substance: LISINOPRIL
  2. NEBULIZER [Concomitant]
     Active Substance: DEVICE
  3. GUAIFENESIN. [Concomitant]
     Active Substance: GUAIFENESIN
  4. METFORMIN [Concomitant]
     Active Substance: METFORMIN HYDROCHLORIDE
  5. METOPROLOL TARTRATE. [Concomitant]
     Active Substance: METOPROLOL TARTRATE
  6. PRAVASTATIN [Concomitant]
     Active Substance: PRAVASTATIN\PRAVASTATIN SODIUM
  7. CYANOCOBALAMIN. [Concomitant]
     Active Substance: CYANOCOBALAMIN
  8. ISOSORBIDE MONONITRATE. [Concomitant]
     Active Substance: ISOSORBIDE MONONITRATE
  9. ASPIRIN. [Concomitant]
     Active Substance: ASPIRIN
  10. VITAMIN B12 [Concomitant]
     Active Substance: CYANOCOBALAMIN
  11. FISH OIL [Concomitant]
     Active Substance: FISH OIL
  12. SYMBICORT [Concomitant]
     Active Substance: BUDESONIDE\FORMOTEROL FUMARATE DIHYDRATE
  13. ALBUTEROL. [Concomitant]
     Active Substance: ALBUTEROL
  14. AZITHROMYCIN [Suspect]
     Active Substance: AZITHROMYCIN ANHYDROUS
     Indication: BRONCHIAL DISORDER
     Dosage: BY MOUTH
     Dates: start: 20091018, end: 20091027

REACTIONS (3)
  - Fall [None]
  - Guillain-Barre syndrome [None]
  - Abasia [None]

NARRATIVE: CASE EVENT DATE: 20091031
